FAERS Safety Report 19455605 (Version 1)
Quarter: 2021Q2

REPORT INFORMATION
  Report Type: Spontaneous
  Country: US (occurrence: US)
  Receive Date: 20210623
  Receipt Date: 20210623
  Transmission Date: 20210717
  Serious: Yes (Hospitalization)
  Sender: FDA-Public Use
  Company Number: None

PATIENT

DRUGS (1)
  1. OXCARBAZEPINE. [Suspect]
     Active Substance: OXCARBAZEPINE
     Dates: end: 20210504

REACTIONS (2)
  - Inappropriate antidiuretic hormone secretion [None]
  - Depression [None]

NARRATIVE: CASE EVENT DATE: 20210429
